FAERS Safety Report 23219497 (Version 1)
Quarter: 2023Q4

REPORT INFORMATION
  Report Type: Spontaneous
  Country: US (occurrence: None)
  Receive Date: 20231122
  Receipt Date: 20231122
  Transmission Date: 20240110
  Serious: No
  Sender: FDA-Public Use
  Company Number: None

PATIENT
  Age: 15 Year
  Sex: Female

DRUGS (1)
  1. TWIRLA [Suspect]
     Active Substance: ETHINYL ESTRADIOL\LEVONORGESTREL
     Indication: Product used for unknown indication
     Dosage: OTHER STRENGTH : MCG;?OTHER QUANTITY : 9 PATCH(ES);?OTHER FREQUENCY : EVERY 7 DAYS AND OFF FOR  3 DA
     Route: 061
     Dates: start: 20230919, end: 20231117

REACTIONS (4)
  - Dysmenorrhoea [None]
  - Menstruation delayed [None]
  - Adnexa uteri pain [None]
  - Drug ineffective [None]

NARRATIVE: CASE EVENT DATE: 20231117
